FAERS Safety Report 23470782 (Version 1)
Quarter: 2024Q1

REPORT INFORMATION
  Report Type: Spontaneous
  Country: CN (occurrence: CN)
  Receive Date: 20240202
  Receipt Date: 20240202
  Transmission Date: 20240410
  Serious: Yes (Hospitalization, Other)
  Sender: FDA-Public Use
  Company Number: CN-ASTELLAS-2024US003101

PATIENT
  Age: 25 Year
  Sex: Male

DRUGS (10)
  1. TACROLIMUS [Suspect]
     Active Substance: TACROLIMUS
     Indication: HIV infection
     Dosage: 0.5 MG, EVERY 12 HOURS
     Route: 048
  2. TACROLIMUS [Suspect]
     Active Substance: TACROLIMUS
     Indication: Glomerulonephritis membranous
     Dosage: 0.5 MG, EVERY 14 DAYS
     Route: 048
     Dates: end: 202109
  3. TENOFOVIR [Concomitant]
     Active Substance: TENOFOVIR
     Indication: Antiviral treatment
     Dosage: UNK UNK, UNKNOWN FREQ.
     Route: 065
     Dates: start: 20171226
  4. TENOFOVIR [Concomitant]
     Active Substance: TENOFOVIR
     Route: 065
  5. LAMIVUDINE [Concomitant]
     Active Substance: LAMIVUDINE
     Indication: Antiviral treatment
     Route: 065
  6. LOPINAVIR\RITONAVIR [Concomitant]
     Active Substance: LOPINAVIR\RITONAVIR
     Indication: Antiviral treatment
     Route: 065
  7. PREDNISONE [Concomitant]
     Active Substance: PREDNISONE
     Indication: Glomerulonephritis membranous
     Route: 065
  8. PREDNISONE [Concomitant]
     Active Substance: PREDNISONE
     Route: 065
  9. PREDNISONE [Concomitant]
     Active Substance: PREDNISONE
     Dosage: UNK, UNKNOWN FREQ. (GRADUALLY REDUCED)
     Route: 065
  10. VALSARTAN [Concomitant]
     Active Substance: VALSARTAN
     Indication: Glomerulonephritis membranous
     Route: 065

REACTIONS (9)
  - Toxicity to various agents [Recovering/Resolving]
  - Renal injury [Recovering/Resolving]
  - Chronic kidney disease [Recovering/Resolving]
  - Tremor [Recovered/Resolved]
  - Pyrexia [Recovered/Resolved]
  - Chest discomfort [Recovered/Resolved]
  - Chest pain [Recovered/Resolved]
  - Drug effective for unapproved indication [Unknown]
  - Off label use [Unknown]
